FAERS Safety Report 5643129-2 (Version None)
Quarter: 2008Q1

REPORT INFORMATION
  Report Type: 
  Country: None (occurrence: None)
  Receive Date: 20080228
  Receipt Date: 20080215
  Transmission Date: 20080703
  Serious: Yes (Disabling, Other)
  Sender: FDA-Public Use
  Company Number: FI-ROCHE-543067

PATIENT
  Age: 60 Year
  Sex: Female

DRUGS (3)
  1. ROACCUTAN [Suspect]
     Indication: FOLLICULITIS
     Dosage: 10 MG EVERY OTHER DAY.
     Route: 048
     Dates: start: 19920101
  2. ROACCUTAN [Suspect]
     Dosage: LATER 10-20 MG/WEEK.
     Route: 048
     Dates: end: 20060101
  3. NITROFURANTOIN [Concomitant]
     Dosage: DRUG NAME REPORTED AS NITROFUR.

REACTIONS (3)
  - CALCINOSIS [None]
  - EYE DISORDER [None]
  - POLYNEUROPATHY [None]
